FAERS Safety Report 17192979 (Version 2)
Quarter: 2020Q2

REPORT INFORMATION
  Report Type: Spontaneous
  Country: US (occurrence: US)
  Receive Date: 20191223
  Receipt Date: 20200612
  Transmission Date: 20200713
  Serious: No
  Sender: FDA-Public Use
  Company Number: US-SA-2019SA263672

PATIENT

DRUGS (2)
  1. CETRIZINE [Concomitant]
     Active Substance: CETIRIZINE HYDROCHLORIDE
     Dosage: UNK
  2. DUPIXENT [Suspect]
     Active Substance: DUPILUMAB
     Dosage: 200 MG, QOW
     Route: 058

REACTIONS (3)
  - Dry eye [Unknown]
  - Product dose omission [Unknown]
  - Skin mass [Unknown]

NARRATIVE: CASE EVENT DATE: 2020
